FAERS Safety Report 23975726 (Version 1)
Quarter: 2024Q2

REPORT INFORMATION
  Report Type: Other
  Country: US (occurrence: US)
  Receive Date: 20240614
  Receipt Date: 20240614
  Transmission Date: 20240716
  Serious: Yes (Hospitalization, Other)
  Sender: FDA-Public Use
  Company Number: US-SERVIER-S24006830

PATIENT

DRUGS (1)
  1. ONCASPAR [Suspect]
     Active Substance: PEGASPARGASE
     Indication: Acute lymphocytic leukaemia
     Dosage: UNK
     Route: 042

REACTIONS (5)
  - Hypertriglyceridaemia [Recovered/Resolved]
  - Pseudohyponatraemia [Recovered/Resolved]
  - Pseudohyperkalaemia [Recovered/Resolved]
  - Blood bilirubin increased [Unknown]
  - Blood lactate dehydrogenase increased [Unknown]
